FAERS Safety Report 25229368 (Version 2)
Quarter: 2025Q2

REPORT INFORMATION
  Report Type: Spontaneous
  Country: IT (occurrence: IT)
  Receive Date: 20250423
  Receipt Date: 20250429
  Transmission Date: 20250716
  Serious: Yes (Hospitalization, Other)
  Sender: ROCHE
  Company Number: None

PATIENT
  Age: 44 Year
  Sex: Male

DRUGS (1)
  1. OCREVUS [Suspect]
     Active Substance: OCRELIZUMAB
     Indication: Product used for unknown indication
     Dosage: THE PATIENT STARTED OCRELIZUMAB THERAPY IN FEBRUARY 2020, WITH A MAINTENANCE DOSE OF 600 MG EVERY 6
     Route: 042
     Dates: start: 202002, end: 20240410

REACTIONS (4)
  - Pneumonia klebsiella [Recovered/Resolved with Sequelae]
  - Otitis media chronic [Recovered/Resolved with Sequelae]
  - Mastoiditis [Recovered/Resolved with Sequelae]
  - Mastoiditis [Not Recovered/Not Resolved]

NARRATIVE: CASE EVENT DATE: 20240719
